FAERS Safety Report 11913391 (Version 3)
Quarter: 2016Q4

REPORT INFORMATION
  Report Type: Spontaneous
  Country: DK (occurrence: DK)
  Receive Date: 20160113
  Receipt Date: 20161228
  Transmission Date: 20170206
  Serious: Yes (Hospitalization)
  Sender: FDA-Public Use
  Company Number: DK-PFIZER INC-2016005987

PATIENT
  Age: 29 Year
  Sex: Male

DRUGS (14)
  1. ADRIAMYCIN [Suspect]
     Active Substance: DOXORUBICIN HYDROCHLORIDE
     Indication: HODGKIN^S DISEASE
     Dosage: BASE BEACOPP: 25 MG/M2 CYCLIC IV PUSH
     Route: 042
     Dates: start: 20120113, end: 2012
  2. ONCOVIN [Suspect]
     Active Substance: VINCRISTINE SULFATE
     Indication: HODGKIN^S DISEASE
     Dosage: BASE BEACOPP: 1.4 MG/M2 (MAX 2 MG). DOSE-ESCALATED BEACOPP: 1.4 MG/M2 (MAX. 2 MG). IV INFUSION
     Route: 042
     Dates: start: 20120113, end: 20120612
  3. SENDOXAN [Suspect]
     Active Substance: CYCLOPHOSPHAMIDE
     Dosage: DOSE-ESCALATED BEACOPP: 1250 MG/M2  IV INFUSION
     Route: 042
     Dates: start: 2012, end: 20120612
  4. PREDNISOLON [Concomitant]
     Active Substance: PREDNISOLONE
     Indication: HODGKIN^S DISEASE
     Dosage: UNK
     Dates: start: 20120113, end: 20120612
  5. ETOPOSIDE. [Suspect]
     Active Substance: ETOPOSIDE
     Dosage: DOSE-ESCALATED BEACOPP: 200 MG/M2 CYCLIC IV PUSH
     Route: 042
     Dates: start: 2012, end: 20120612
  6. SENDOXAN [Suspect]
     Active Substance: CYCLOPHOSPHAMIDE
     Indication: HODGKIN^S DISEASE
     Dosage: BASE BEACOPP: 650 MG/M2 IV INFUSION
     Route: 042
     Dates: start: 20120113, end: 2012
  7. BLEOMYCIN [Suspect]
     Active Substance: BLEOMYCIN SULFATE
     Indication: HODGKIN^S DISEASE
     Dosage: (STRENGTH 15000 IE), BASE BEACOPP: 10 MG/M2, DOSE-ESCALATED BEACOPP: 10 MG/M2 IV PUSH
     Route: 042
     Dates: start: 20120306, end: 20120612
  8. PREDNISONE. [Concomitant]
     Active Substance: PREDNISONE
     Dosage: BASE BEACOPP: 40 MG/M2. DOSE-ESCALATED BEACOPP: 40 MG/M2
     Route: 048
  9. ETOPOSIDE. [Suspect]
     Active Substance: ETOPOSIDE
     Indication: HODGKIN^S DISEASE
     Dosage: BASE BEACOPP: 100 MG/M2 CYCLIC IV PUSH
     Route: 042
     Dates: start: 20120113, end: 2012
  10. BLEOMYCIN [Suspect]
     Active Substance: BLEOMYCIN SULFATE
     Indication: HODGKIN^S DISEASE
     Dosage: (STRENGTH 15000 IE), BASE BEACOPP: 10 MG/M2, DOSE-ESCALATED BEACOPP: 10 MG/M2 IV PUSH
     Route: 042
     Dates: start: 20120113, end: 20120214
  11. NATULAN ^SIGMA-TAU^ [Suspect]
     Active Substance: PROCARBAZINE HYDROCHLORIDE
     Dosage: BASE BEACOPP: 100 MG/M2. DOSE-ESCALATED BEACOPP: 100 MG/M2
     Route: 048
  12. NEULASTA [Concomitant]
     Active Substance: PEGFILGRASTIM
     Indication: HODGKIN^S DISEASE
     Dosage: 6 MG, UNK
     Dates: start: 201201, end: 2012
  13. NATULAN ^SIGMA-TAU^ [Suspect]
     Active Substance: PROCARBAZINE HYDROCHLORIDE
     Indication: HODGKIN^S DISEASE
     Dosage: 50 MG, UNK
     Route: 048
     Dates: start: 20120113, end: 20120612
  14. ADRIAMYCIN [Suspect]
     Active Substance: DOXORUBICIN HYDROCHLORIDE
     Dosage: DOSE-ESCALATED BEACOPP: 35 MG/M2  CYCLIC IV PUSH
     Route: 042
     Dates: start: 2012, end: 20120612

REACTIONS (15)
  - Paraesthesia [Recovered/Resolved]
  - Fatigue [Recovered/Resolved]
  - Chest pain [Recovered/Resolved]
  - Arthralgia [Recovered/Resolved]
  - Abdominal pain upper [Recovered/Resolved]
  - Nausea [Recovered/Resolved]
  - Dyspepsia [Recovered/Resolved]
  - Tinnitus [Recovered/Resolved]
  - Dyspnoea [Recovered/Resolved]
  - Diarrhoea [Recovering/Resolving]
  - Musculoskeletal pain [Recovered/Resolved]
  - Dizziness [Recovered/Resolved]
  - Back pain [Recovered/Resolved]
  - Palpitations [Recovered/Resolved]
  - Headache [Recovered/Resolved]

NARRATIVE: CASE EVENT DATE: 20120124
